FAERS Safety Report 24901104 (Version 1)
Quarter: 2025Q1

REPORT INFORMATION
  Report Type: Spontaneous
  Country: US (occurrence: None)
  Receive Date: 20250129
  Receipt Date: 20250129
  Transmission Date: 20250409
  Serious: Yes (Hospitalization)
  Sender: FDA-CTU
  Company Number: None

PATIENT
  Age: 36 Year
  Sex: Female
  Weight: 103.5 kg

DRUGS (3)
  1. KESIMPTA [Suspect]
     Active Substance: OFATUMUMAB
     Indication: Multiple sclerosis
     Route: 061
     Dates: start: 202405
  2. PROVIGIL [Concomitant]
     Active Substance: MODAFINIL
  3. SERTRALINE [Concomitant]
     Active Substance: SERTRALINE HYDROCHLORIDE

REACTIONS (15)
  - Bedridden [None]
  - Chills [None]
  - Pyrexia [None]
  - Headache [None]
  - Fall [None]
  - Bacterial test positive [None]
  - Pain [None]
  - Hemiparesis [None]
  - Brain fog [None]
  - Feeling abnormal [None]
  - Migraine [None]
  - Asthenia [None]
  - Contusion [None]
  - Cognitive disorder [None]
  - Loss of personal independence in daily activities [None]

NARRATIVE: CASE EVENT DATE: 20240506
